FAERS Safety Report 16119891 (Version 1)
Quarter: 2019Q1

REPORT INFORMATION
  Report Type: Spontaneous
  Country: US (occurrence: US)
  Receive Date: 20190326
  Receipt Date: 20190326
  Transmission Date: 20190418
  Serious: Yes (Other)
  Sender: FDA-Public Use
  Company Number: US-ASTRAZENECA-2019SE47451

PATIENT

DRUGS (3)
  1. PRILOSEC OTC [Suspect]
     Active Substance: OMEPRAZOLE MAGNESIUM
     Indication: GASTROINTESTINAL DISORDER
     Dosage: MULTIPLE AND VARIOUS YEARS BEGINNING IN OR BEFORE 2006
     Route: 048
  2. NEXIUM [Suspect]
     Active Substance: ESOMEPRAZOLE MAGNESIUM
     Indication: GASTROINTESTINAL DISORDER
     Route: 048
  3. PRILOSEC [Suspect]
     Active Substance: OMEPRAZOLE MAGNESIUM
     Indication: GASTROINTESTINAL DISORDER
     Dosage: VARIOUS YEARS AND DATES BEGINNING IN OR BEFORE 2006
     Route: 048

REACTIONS (6)
  - Renal failure [Unknown]
  - Drug dependence [Unknown]
  - Rebound effect [Unknown]
  - Hyperchlorhydria [Unknown]
  - Pain [Unknown]
  - Chronic kidney disease [Unknown]
